FAERS Safety Report 18290731 (Version 1)
Quarter: 2020Q3

REPORT INFORMATION
  Report Type: Spontaneous
  Country: US (occurrence: US)
  Receive Date: 20200922
  Receipt Date: 20200922
  Transmission Date: 20201103
  Serious: No
  Sender: FDA-Public Use
  Company Number: US-ASTRAZENECA-2020SF18366

PATIENT
  Sex: Female

DRUGS (24)
  1. METFORMIN [Concomitant]
     Active Substance: METFORMIN HYDROCHLORIDE
  2. XANAX [Concomitant]
     Active Substance: ALPRAZOLAM
  3. ALBERTSONS FERROUS SULFATE [Concomitant]
  4. NORVASC [Concomitant]
     Active Substance: AMLODIPINE BESYLATE
  5. ERGOVALCIFEROL [Concomitant]
  6. BISACODYL. [Concomitant]
     Active Substance: BISACODYL
  7. TOPAMAX [Concomitant]
     Active Substance: TOPIRAMATE
  8. EQL POTASSIUM GLOCONATE [Concomitant]
  9. ZOFRAN [Concomitant]
     Active Substance: ONDANSETRON HYDROCHLORIDE
  10. MAALOX ANTACID [Concomitant]
     Active Substance: ALUMINUM HYDROXIDE\DIMETHICONE\MAGNESIUM HYDROXIDE
  11. CLARITIN [Concomitant]
     Active Substance: LORATADINE
  12. BUPIVACAINE. [Concomitant]
     Active Substance: BUPIVACAINE
  13. PRILOSEC [Suspect]
     Active Substance: OMEPRAZOLE MAGNESIUM
     Dosage: DOSE UNKNOWN
     Route: 048
  14. INSULIN REG INJECTION [Concomitant]
  15. FLEXERIL [Concomitant]
     Active Substance: CYCLOBENZAPRINE HYDROCHLORIDE
  16. HYDROCODONE BITARTRATE AND ACETAMINOPHEN [Concomitant]
     Active Substance: ACETAMINOPHEN\HYDROCODONE BITARTRATE
  17. LEVEMIR [Concomitant]
     Active Substance: INSULIN DETEMIR
  18. ZETIA [Concomitant]
     Active Substance: EZETIMIBE
  19. AMITRIPTYLINE [Concomitant]
     Active Substance: AMITRIPTYLINE
  20. LISINOPRIL. [Concomitant]
     Active Substance: LISINOPRIL
  21. WELLBUTRIN [Concomitant]
     Active Substance: BUPROPION HYDROCHLORIDE
  22. MORPHINE PUMP [Concomitant]
     Active Substance: MORPHINE
  23. CRESTOR [Suspect]
     Active Substance: ROSUVASTATIN CALCIUM
     Dosage: DOSE UNKNOWN
     Route: 048
  24. OXYCODONE?ACETAMINOPHEN [Concomitant]
     Active Substance: ACETAMINOPHEN\OXYCODONE HYDROCHLORIDE

REACTIONS (7)
  - Abdominal pain [Unknown]
  - Vomiting [Unknown]
  - Constipation [Unknown]
  - Pain [Unknown]
  - Hyperhidrosis [Unknown]
  - Disorientation [Unknown]
  - Asthenia [Unknown]
